FAERS Safety Report 23202857 (Version 1)
Quarter: 2023Q4

REPORT INFORMATION
  Report Type: Spontaneous
  Country: US (occurrence: US)
  Receive Date: 20231120
  Receipt Date: 20231120
  Transmission Date: 20240109
  Serious: No
  Sender: FDA-Public Use
  Company Number: US-SA-SAC20231116000125

PATIENT

DRUGS (1)
  1. DUPIXENT [Suspect]
     Active Substance: DUPILUMAB
     Indication: Vitiligo
     Route: 065

REACTIONS (3)
  - Hair growth abnormal [Unknown]
  - Off label use [Unknown]
  - Product use in unapproved indication [Unknown]
